FAERS Safety Report 11460871 (Version 1)
Quarter: 2015Q3

REPORT INFORMATION
  Report Type: Spontaneous
  Country: US (occurrence: US)
  Receive Date: 20150904
  Receipt Date: 20150904
  Transmission Date: 20151125
  Serious: Yes (Other)
  Sender: FDA-Public Use
  Company Number: US-TAKEDA-2014TUS008790

PATIENT

DRUGS (13)
  1. ACTOPLUS MET [Suspect]
     Active Substance: METFORMIN HYDROCHLORIDE\PIOGLITAZONE HYDROCHLORIDE
     Indication: TYPE 2 DIABETES MELLITUS
     Dosage: 15/850
     Route: 048
     Dates: start: 2011, end: 2012
  2. GLUCOPHAGE [Concomitant]
     Active Substance: METFORMIN HYDROCHLORIDE
  3. LEVEMIR [Concomitant]
     Active Substance: INSULIN DETEMIR
     Dosage: 20 IU, BID
     Dates: start: 2012
  4. BYETTA [Concomitant]
     Active Substance: EXENATIDE
     Dosage: 10 ?G, BID
     Dates: start: 2009
  5. METFORMIN [Concomitant]
     Active Substance: METFORMIN HYDROCHLORIDE
     Dosage: 1000 MG, BID
     Dates: start: 201207
  6. AVANDIA [Concomitant]
     Active Substance: ROSIGLITAZONE MALEATE
  7. HUMALOG [Concomitant]
     Active Substance: INSULIN LISPRO
     Dosage: 75/25 10 UNITS AM 38 UNITS LUNCH
     Dates: start: 2011
  8. LANTUS [Concomitant]
     Active Substance: INSULIN GLARGINE
     Dosage: 30 - 40 UNITS
     Dates: start: 2007
  9. GLUCOTROL [Concomitant]
     Active Substance: GLIPIZIDE
  10. AMARYL [Concomitant]
     Active Substance: GLIMEPIRIDE
     Dosage: 4 MG, UNK
     Dates: start: 2011
  11. NOVOLOG [Concomitant]
     Active Substance: INSULIN ASPART
     Indication: DIABETES MELLITUS
     Dosage: 70/30 UNK
     Dates: start: 2009
  12. ACTOS [Suspect]
     Active Substance: PIOGLITAZONE HYDROCHLORIDE
     Indication: TYPE 2 DIABETES MELLITUS
     Dosage: UNK
     Route: 048
     Dates: start: 2011, end: 2012
  13. DIABETA                            /00145301/ [Concomitant]
     Dosage: 5 MG, UNK
     Dates: start: 2007

REACTIONS (1)
  - Bladder cancer [Not Recovered/Not Resolved]

NARRATIVE: CASE EVENT DATE: 201208
